FAERS Safety Report 7056341-5 (Version None)
Quarter: 2010Q4

REPORT INFORMATION
  Report Type: 
  Country: None (occurrence: None)
  Receive Date: 20101021
  Receipt Date: 20101018
  Transmission Date: 20110411
  Serious: Yes (Hospitalization)
  Sender: FDA-Public Use
  Company Number: ES-AMGEN LTD.-ESPCT2010000324

PATIENT

DRUGS (1)
  1. PANITUMUMAB [Suspect]
     Indication: COLORECTAL CANCER METASTATIC
     Dosage: UNK UNK, Q3WK
     Dates: start: 20100610

REACTIONS (1)
  - CONFUSIONAL STATE [None]
